FAERS Safety Report 14852568 (Version 1)
Quarter: 2018Q2

REPORT INFORMATION
  Report Type: Report from Study
  Country: DE (occurrence: DE)
  Receive Date: 20180507
  Receipt Date: 20180507
  Transmission Date: 20180711
  Serious: Yes (Death)
  Sender: FDA-Public Use
  Company Number: DE-ROCHE-2117663

PATIENT
  Age: 54 Year
  Sex: Male
  Weight: 84 kg

DRUGS (4)
  1. DAKLINZA [Suspect]
     Active Substance: DACLATASVIR
     Indication: CHRONIC HEPATITIS C
     Dosage: MOST RECENT DOSE ON 12/MAR/2015
     Route: 048
     Dates: start: 20140926
  2. RIBAVIRIN. [Suspect]
     Active Substance: RIBAVIRIN
     Indication: CHRONIC HEPATITIS C
     Dosage: ON 12/MAR/2015, HE RECEIVED MOST RECENT DOSE OF RIBAVIRIN.
     Route: 048
     Dates: start: 20141024
  3. SOFOSBUVIR [Suspect]
     Active Substance: SOFOSBUVIR
     Indication: CHRONIC HEPATITIS C
     Dosage: MOST RECENT DOSE ON 12/MAR/2015
     Route: 048
     Dates: start: 20140926
  4. RIBAVIRIN. [Suspect]
     Active Substance: RIBAVIRIN
     Dosage: ON 23/OCT/2014, HE RECEIVED MOST RECENT DOSE OF RIBAVIRIN.
     Route: 048
     Dates: start: 20140926

REACTIONS (1)
  - Accidental death [Fatal]
